FAERS Safety Report 13895837 (Version 2)
Quarter: 2017Q3

REPORT INFORMATION
  Report Type: Report from Study
  Country: CA (occurrence: CA)
  Receive Date: 20170823
  Receipt Date: 20170825
  Transmission Date: 20171127
  Serious: Yes (Other)
  Sender: FDA-Public Use
  Company Number: PHHY2017CA123333

PATIENT
  Age: 43 Year
  Sex: Female

DRUGS (1)
  1. GILENYA [Suspect]
     Active Substance: FINGOLIMOD HYDROCHLORIDE
     Indication: RELAPSING-REMITTING MULTIPLE SCLEROSIS
     Dosage: 0.5 MG, QD
     Route: 048
     Dates: start: 20170818

REACTIONS (4)
  - Heart rate decreased [Unknown]
  - Blood pressure decreased [Unknown]
  - Headache [Unknown]
  - Electrocardiogram PR shortened [Unknown]

NARRATIVE: CASE EVENT DATE: 20170818
